FAERS Safety Report 6803630-2 (Version None)
Quarter: 2010Q2

REPORT INFORMATION
  Report Type: 
  Country: None (occurrence: None)
  Receive Date: 20100628
  Receipt Date: 20100624
  Transmission Date: 20101027
  Serious: Yes (Death)
  Sender: FDA-Public Use
  Company Number: DE-ASTRAZENECA-2010SE29579

PATIENT
  Age: 23818 Day
  Sex: Male
  Weight: 56.8 kg

DRUGS (3)
  1. IRESSA [Suspect]
     Indication: NON-SMALL CELL LUNG CANCER
     Route: 048
     Dates: start: 20100323
  2. PLAVIX [Suspect]
     Route: 048
     Dates: start: 20100210
  3. SORTIS [Concomitant]
     Route: 048

REACTIONS (1)
  - PULMONARY HAEMORRHAGE [None]
